FAERS Safety Report 24570182 (Version 2)
Quarter: 2024Q4

REPORT INFORMATION
  Report Type: Spontaneous
  Country: CO (occurrence: CO)
  Receive Date: 20241031
  Receipt Date: 20241218
  Transmission Date: 20250114
  Serious: No
  Sender: PFIZER
  Company Number: CO-PFIZER INC-202400290865

PATIENT

DRUGS (1)
  1. GENOTROPIN [Suspect]
     Active Substance: SOMATROPIN
     Dosage: 0.6 MG

REACTIONS (1)
  - Device material issue [Unknown]
